FAERS Safety Report 6521027-X (Version None)
Quarter: 2009Q4

REPORT INFORMATION
  Report Type: 
  Country: None (occurrence: None)
  Receive Date: 20091229
  Receipt Date: 20091217
  Transmission Date: 20100525
  Serious: Yes (Other)
  Sender: FDA-Public Use
  Company Number: US-SANOFI-AVENTIS-2009SA010078

PATIENT
  Sex: Male

DRUGS (4)
  1. ELOXATIN [Suspect]
     Indication: RECTAL CANCER STAGE III
     Route: 041
  2. CAPECITABINE [Suspect]
     Indication: RECTAL CANCER STAGE III
     Route: 065
  3. FLUOROURACIL [Suspect]
     Indication: RECTAL CANCER STAGE III
     Route: 065
  4. LEUCOVORIN CALCIUM [Suspect]
     Indication: RECTAL CANCER STAGE III
     Route: 065

REACTIONS (13)
  - CARDIOTOXICITY [None]
  - CHEST PAIN [None]
  - DYSPNOEA [None]
  - GASTRITIS [None]
  - HYPERHIDROSIS [None]
  - LEFT VENTRICULAR DYSFUNCTION [None]
  - METASTASES TO LUNG [None]
  - NAUSEA [None]
  - PALPITATIONS [None]
  - RECTAL CANCER STAGE III [None]
  - SINUS TACHYCARDIA [None]
  - SUPRAVENTRICULAR EXTRASYSTOLES [None]
  - VENTRICULAR HYPOKINESIA [None]
